FAERS Safety Report 6434838-6 (Version None)
Quarter: 2009Q4

REPORT INFORMATION
  Report Type: 
  Country: None (occurrence: None)
  Receive Date: 20091110
  Receipt Date: 20091027
  Transmission Date: 20100525
  Serious: No
  Sender: FDA-Public Use
  Company Number: US-JNJFOC-20091008947

PATIENT
  Sex: Male
  Weight: 79.38 kg

DRUGS (5)
  1. FENTANYL TRANSDERMAL SYSTEM [Suspect]
     Indication: BACK PAIN
     Route: 062
  2. COUMADIN [Concomitant]
     Indication: BLOOD DISORDER
     Route: 048
  3. FOLIC ACID [Concomitant]
     Indication: BLOOD DISORDER
     Route: 048
  4. LORTAB [Concomitant]
     Indication: PAIN
     Dosage: DOSE- 10/325 MG
     Route: 048
  5. UNKNOWN MEDICATION [Concomitant]
     Indication: BLOOD CHOLESTEROL ABNORMAL
     Route: 048

REACTIONS (1)
  - WRONG TECHNIQUE IN DRUG USAGE PROCESS [None]
